FAERS Safety Report 8011757-5 (Version None)
Quarter: 2011Q4

REPORT INFORMATION
  Report Type: 
  Country: None (occurrence: None)
  Receive Date: 20111228
  Receipt Date: 20111219
  Transmission Date: 20120403
  Serious: Yes (Other)
  Sender: FDA-Public Use
  Company Number: PHHY2011TW110341

PATIENT
  Age: 39 Year
  Sex: Male

DRUGS (3)
  1. QUETIAPINE [Interacting]
     Indication: BIPOLAR DISORDER
  2. SULPIRIDE [Suspect]
     Indication: BIPOLAR DISORDER
  3. VALPROIC ACID [Interacting]
     Indication: BIPOLAR DISORDER

REACTIONS (8)
  - BODY MASS INDEX DECREASED [None]
  - APPETITE DISORDER [None]
  - METABOLIC ACIDOSIS [None]
  - DIABETES WITH HYPEROSMOLARITY [None]
  - DEPRESSED MOOD [None]
  - DRUG INTERACTION [None]
  - FATIGUE [None]
  - THIRST [None]
